FAERS Safety Report 4603163-8 (Version None)
Quarter: 2005Q1

REPORT INFORMATION
  Report Type: 
  Country: None (occurrence: None)
  Receive Date: 20050307
  Receipt Date: 20050221
  Transmission Date: 20050727
  Serious: Yes (Death, Hospitalization)
  Sender: FDA-Public Use
  Company Number: 05H-028-0289939

PATIENT
  Age: 51 Year
  Sex: Female
  Weight: 55 kg

DRUGS (7)
  1. STERILE WATER FOR INJECTION, PRES.-FREE, USP, FT VIAL [Suspect]
     Dates: start: 20041022, end: 20041119
  2. PEGETRON [Suspect]
     Indication: HEPATITIS C
     Dates: start: 20041022, end: 20041119
  3. RIBAVIRIN [Suspect]
     Indication: HEPATITIS C
     Dosage: ORAL
     Route: 048
     Dates: start: 20041022, end: 20041119
  4. SPIRONOLACTONE [Concomitant]
  5. LORAZEPAM [Concomitant]
  6. CORTISONE [Concomitant]
  7. ALBUTEROL [Concomitant]

REACTIONS (11)
  - ANAEMIA [None]
  - CARDIAC MURMUR [None]
  - ENDOCARDITIS [None]
  - GLOMERULONEPHRITIS [None]
  - HYPOTENSION [None]
  - INJECTION SITE PAIN [None]
  - MENINGITIS [None]
  - PSORIASIS [None]
  - RENAL FAILURE [None]
  - RESPIRATORY FAILURE [None]
  - STAPHYLOCOCCAL SEPSIS [None]
